FAERS Safety Report 13037129 (Version 2)
Quarter: 2016Q4

REPORT INFORMATION
  Report Type: Report from Study
  Country: JP (occurrence: JP)
  Receive Date: 20161216
  Receipt Date: 20161228
  Transmission Date: 20170207
  Serious: Yes (Other)
  Sender: FDA-Public Use
  Company Number: JP-BAXTER-2016BAX063217

PATIENT
  Sex: Male

DRUGS (18)
  1. ENDOXAN 1G [Suspect]
     Active Substance: CYCLOPHOSPHAMIDE
     Indication: BURKITT^S LYMPHOMA STAGE IV
     Route: 041
     Dates: start: 20120607, end: 20120607
  2. VEPESID [Suspect]
     Active Substance: ETOPOSIDE
     Indication: HIV INFECTION
  3. METHOTREXATE. [Suspect]
     Active Substance: METHOTREXATE
     Indication: BURKITT^S LYMPHOMA STAGE IV
     Dosage: RECEIVED TWICE UNTIL 30JUL2012
     Route: 042
     Dates: start: 20120615
  4. CYTARABINE. [Suspect]
     Active Substance: CYTARABINE
     Indication: HIV INFECTION
     Route: 042
  5. IFEX [Suspect]
     Active Substance: IFOSFAMIDE
     Indication: BURKITT^S LYMPHOMA STAGE IV
     Dosage: 1 COURSE
     Route: 041
     Dates: start: 20120629, end: 20120703
  6. METHOTREXATE. [Suspect]
     Active Substance: METHOTREXATE
     Indication: HIV INFECTION
     Route: 037
     Dates: start: 20120620, end: 20120620
  7. ENDOXAN 1G [Suspect]
     Active Substance: CYCLOPHOSPHAMIDE
     Indication: HIV INFECTION
     Route: 041
     Dates: start: 20120608, end: 20120611
  8. CYTARABINE. [Suspect]
     Active Substance: CYTARABINE
     Indication: BURKITT^S LYMPHOMA STAGE IV
     Route: 065
     Dates: start: 20120606, end: 20120723
  9. RITUXAN [Suspect]
     Active Substance: RITUXIMAB
     Indication: BURKITT^S LYMPHOMA STAGE IV
     Route: 042
     Dates: start: 20120803, end: 20120828
  10. ENDOXAN 1G [Suspect]
     Active Substance: CYCLOPHOSPHAMIDE
     Dosage: SECOND COURSE OF CODOX-M THERAPY
     Route: 041
     Dates: start: 20120721, end: 20120721
  11. ONCOVIN [Suspect]
     Active Substance: VINCRISTINE SULFATE
     Indication: BURKITT^S LYMPHOMA STAGE IV
     Dosage: (2 DOSAGE FORM/DAY)
     Route: 042
     Dates: start: 20120606, end: 20120728
  12. ADRIACIN [Suspect]
     Active Substance: DOXORUBICIN HYDROCHLORIDE
     Indication: BURKITT^S LYMPHOMA STAGE IV
     Route: 041
     Dates: start: 20120606, end: 20120721
  13. RITUXAN [Suspect]
     Active Substance: RITUXIMAB
     Indication: HIV INFECTION
  14. ENDOXAN 1G [Suspect]
     Active Substance: CYCLOPHOSPHAMIDE
     Dosage: SECOND COURSE OF CODOX-M THERAPY (DELAYED RELEASE)
     Route: 041
     Dates: start: 20120722, end: 20120725
  15. VEPESID [Suspect]
     Active Substance: ETOPOSIDE
     Indication: BURKITT^S LYMPHOMA STAGE IV
     Dosage: ONE COURSE
     Route: 042
     Dates: start: 20120629, end: 20120820
  16. ADRIACIN [Suspect]
     Active Substance: DOXORUBICIN HYDROCHLORIDE
     Indication: HIV INFECTION
  17. IFEX [Suspect]
     Active Substance: IFOSFAMIDE
     Indication: HIV INFECTION
     Dosage: SECOND COURSE OF IVAC THERAPY (80% DOSE) (DELAYED RELEASE)
     Route: 041
     Dates: start: 20120816, end: 20120820
  18. ONCOVIN [Suspect]
     Active Substance: VINCRISTINE SULFATE
     Indication: HIV INFECTION

REACTIONS (1)
  - Leukoencephalopathy [Unknown]

NARRATIVE: CASE EVENT DATE: 201208
